FAERS Safety Report 8524268-5 (Version None)
Quarter: 2012Q3

REPORT INFORMATION
  Report Type: 
  Country: None (occurrence: None)
  Receive Date: 20120716
  Receipt Date: 20120716
  Transmission Date: 20120928
  Serious: Yes (Disabling, Other)
  Sender: FDA-Public Use
  Company Number: None

PATIENT
  Sex: Male
  Weight: 81.6475 kg

DRUGS (1)
  1. PROPECIA [Suspect]
     Indication: ALOPECIA
     Dosage: 1 MG ONCE A DAY PO
     Route: 048
     Dates: start: 19970101, end: 20120713

REACTIONS (3)
  - SEXUAL DYSFUNCTION [None]
  - EJACULATION FAILURE [None]
  - LOSS OF LIBIDO [None]
